FAERS Safety Report 8154008-3 (Version None)
Quarter: 2012Q1

REPORT INFORMATION
  Report Type: 
  Country: None (occurrence: None)
  Receive Date: 20120221
  Receipt Date: 20120221
  Transmission Date: 20120608
  Serious: Yes (Other)
  Sender: FDA-Public Use
  Company Number: None

PATIENT
  Age: 72 Year
  Sex: Female
  Weight: 99.79 kg

DRUGS (1)
  1. SULFAMETHOXAZOLE AND TRIMETHOPRIM DOUBLE STRENGTH [Suspect]
     Indication: URINARY TRACT INFECTION
     Dosage: 1 TABLET
     Route: 048
     Dates: start: 20120218, end: 20120218

REACTIONS (11)
  - OCULAR HYPERAEMIA [None]
  - TREMOR [None]
  - PRURITUS [None]
  - NECK PAIN [None]
  - VIRAL INFECTION [None]
  - FEELING COLD [None]
  - BACK PAIN [None]
  - VOMITING [None]
  - MUSCULOSKELETAL PAIN [None]
  - NAUSEA [None]
  - ARTHRALGIA [None]
